FAERS Safety Report 10363693 (Version 2)
Quarter: 2014Q3

REPORT INFORMATION
  Report Type: Spontaneous
  Country: JP (occurrence: JP)
  Receive Date: 20140805
  Receipt Date: 20140805
  Transmission Date: 20150326
  Serious: Yes (Other)
  Sender: FDA-Public Use
  Company Number: JP-CELGENEUS-087-AB007-11101817

PATIENT

DRUGS (4)
  1. ABRAXANE [Suspect]
     Active Substance: PACLITAXEL
     Dosage: 220 MILLIGRAM/SQ. METER
     Route: 041
  2. ABRAXANE [Suspect]
     Active Substance: PACLITAXEL
     Dosage: 180 MILLIGRAM/SQ. METER
     Route: 041
  3. ABRAXANE [Suspect]
     Active Substance: PACLITAXEL
     Indication: GASTRIC CANCER
     Dosage: 260 MILLIGRAM/SQ. METER
     Route: 041
  4. ABRAXANE [Suspect]
     Active Substance: PACLITAXEL
     Dosage: 150 MILLIGRAM/SQ. METER
     Route: 041

REACTIONS (30)
  - Alopecia [Unknown]
  - Leukopenia [Unknown]
  - Anaemia [Unknown]
  - Alanine aminotransferase increased [Unknown]
  - Thrombocytopenia [Unknown]
  - Lymphopenia [Unknown]
  - Arthralgia [Unknown]
  - Peripheral motor neuropathy [Unknown]
  - Thrombosis [Unknown]
  - Rash [Unknown]
  - Aspartate aminotransferase increased [Unknown]
  - Decreased appetite [Unknown]
  - Peripheral sensory neuropathy [Unknown]
  - Stomatitis [Unknown]
  - Gastric cancer [Unknown]
  - Constipation [Unknown]
  - Vomiting [Unknown]
  - Protein urine [Unknown]
  - Asthenia [Unknown]
  - Malaise [Unknown]
  - Weight decreased [Unknown]
  - Pruritus [Unknown]
  - Neutropenia [Unknown]
  - Nausea [Unknown]
  - Fatigue [Unknown]
  - Myalgia [Unknown]
  - Hypoalbuminaemia [Unknown]
  - Blood alkaline phosphatase increased [Unknown]
  - Diarrhoea [Unknown]
  - Pyrexia [Unknown]
